FAERS Safety Report 11636893 (Version 1)
Quarter: 2015Q4

REPORT INFORMATION
  Report Type: Spontaneous
  Country: US (occurrence: US)
  Receive Date: 20151016
  Receipt Date: 20151016
  Transmission Date: 20160304
  Serious: Yes (Other)
  Sender: FDA-Public Use
  Company Number: US-SANOFI-AVENTIS-2012SA072331

PATIENT
  Age: 50 Year
  Sex: Female

DRUGS (2)
  1. ASPIRIN. [Suspect]
     Active Substance: ASPIRIN
     Route: 065
     Dates: start: 200712
  2. PLAVIX [Suspect]
     Active Substance: CLOPIDOGREL BISULFATE
     Indication: STENT PLACEMENT
     Route: 065
     Dates: start: 20071204

REACTIONS (6)
  - Memory impairment [Unknown]
  - Hypertension [Unknown]
  - Cerebral haemorrhage [Unknown]
  - Balance disorder [Unknown]
  - Anger [Unknown]
  - Hospitalisation [Unknown]

NARRATIVE: CASE EVENT DATE: 2007
